FAERS Safety Report 7780126-5 (Version None)
Quarter: 2011Q3

REPORT INFORMATION
  Report Type: 
  Country: None (occurrence: None)
  Receive Date: 20110922
  Receipt Date: 20110907
  Transmission Date: 20111222
  Serious: Yes (Other)
  Sender: FDA-Public Use
  Company Number: 1000023889

PATIENT
  Age: 21 Year
  Sex: Female

DRUGS (3)
  1. ALPRAZOLAM [Suspect]
     Dosage: 4.8 MG (1.6 MG, 3 IN 1 D), ORAL
     Route: 048
     Dates: start: 20110809, end: 20110902
  2. PAXIL [Suspect]
     Dosage: 40 MG (20 MG, 2 IN 1 D), ORAL
     Route: 048
     Dates: start: 20110809, end: 20110902
  3. ESCITALOPRAM [Suspect]
     Indication: DEPRESSION
     Dosage: 10 MG (10 MG, 1 IN 1 D), ORAL
     Route: 048
     Dates: start: 20110829, end: 20110902

REACTIONS (3)
  - STUPOR [None]
  - SUICIDE ATTEMPT [None]
  - INTENTIONAL DRUG MISUSE [None]
